FAERS Safety Report 5992856-6 (Version None)
Quarter: 2008Q4

REPORT INFORMATION
  Report Type: 
  Country: None (occurrence: None)
  Receive Date: 20081209
  Receipt Date: 20080331
  Transmission Date: 20090506
  Serious: No
  Sender: FDA-Public Use
  Company Number: 08H-163-0314090-00

PATIENT
  Age: 46 Year
  Sex: Male

DRUGS (2)
  1. MORPHINE SULFATE INJ [Suspect]
     Indication: PAIN
     Dosage: 4MG LOADING DOSE, ONCE, INTRAVENOUS ; 2MG/HR CONT, 4MG PCA DOSE,15^ LOCKOUT, INTRAVENOUS
     Route: 042
     Dates: start: 20080106, end: 20080110
  2. MORPHINE SULFATE INJ [Suspect]
     Indication: PAIN
     Dosage: 4MG LOADING DOSE, ONCE, INTRAVENOUS ; 2MG/HR CONT, 4MG PCA DOSE,15^ LOCKOUT, INTRAVENOUS
     Route: 042
     Dates: start: 20080106, end: 20080110

REACTIONS (2)
  - CYANOSIS [None]
  - UNRESPONSIVE TO STIMULI [None]
